FAERS Safety Report 4417212-3 (Version None)
Quarter: 2004Q3

REPORT INFORMATION
  Report Type: 
  Country: None (occurrence: None)
  Receive Date: 20040806
  Receipt Date: 20040728
  Transmission Date: 20050211
  Serious: Yes (Other)
  Sender: FDA-Public Use
  Company Number: JP-ROCHE-375545

PATIENT
  Age: 56 Year
  Sex: Female

DRUGS (5)
  1. ANEXATE [Suspect]
     Indication: REVERSAL OF SEDATION
     Route: 042
     Dates: start: 20040706, end: 20040706
  2. NALOXONE HCL [Suspect]
     Indication: REVERSAL OF SEDATION
     Route: 042
     Dates: start: 20040706, end: 20040706
  3. OPYSTAN [Concomitant]
     Indication: ENDOSCOPY
     Dates: start: 20040706, end: 20040706
  4. SILECE [Concomitant]
     Route: 042
     Dates: start: 20040706, end: 20040706
  5. GLUCAGON [Concomitant]
     Route: 042
     Dates: start: 20040706, end: 20040706

REACTIONS (5)
  - DEPRESSED LEVEL OF CONSCIOUSNESS [None]
  - HEADACHE [None]
  - HYPOAESTHESIA [None]
  - OXYGEN SATURATION DECREASED [None]
  - POST PROCEDURAL COMPLICATION [None]
